FAERS Safety Report 8319943-1 (Version None)
Quarter: 2012Q2

REPORT INFORMATION
  Report Type: 
  Country: None (occurrence: None)
  Receive Date: 20120427
  Receipt Date: 20120419
  Transmission Date: 20120825
  Serious: Yes (Other)
  Sender: FDA-Public Use
  Company Number: US-ABBOTT-10P-163-0688449-00

PATIENT
  Sex: Male

DRUGS (10)
  1. HUMIRA [Suspect]
     Indication: JUVENILE ARTHRITIS
     Route: 058
     Dates: start: 20100611
  2. ALBUTEROL [Concomitant]
     Indication: ASTHMA
  3. FOLIC ACID [Concomitant]
     Indication: VITAMIN SUPPLEMENTATION
     Dates: start: 20100113
  4. METHOTREXATE [Concomitant]
     Indication: JUVENILE ARTHRITIS
     Dates: start: 20100114, end: 20100604
  5. ZOFRAN [Concomitant]
     Indication: NAUSEA
     Dates: start: 20100114
  6. KEPPRA [Concomitant]
     Indication: EPILEPSY
     Route: 048
     Dates: start: 20081101, end: 20100816
  7. KEPPRA [Concomitant]
     Route: 048
     Dates: end: 20100816
  8. CLARITIN [Concomitant]
     Indication: HYPERSENSITIVITY
  9. FLONASE [Concomitant]
     Indication: ASTHMA
     Route: 045
     Dates: start: 20100210
  10. NAPROSYN [Concomitant]
     Indication: JUVENILE ARTHRITIS
     Dates: start: 20091202

REACTIONS (1)
  - CONVULSION [None]
